FAERS Safety Report 7504204-0 (Version None)
Quarter: 2011Q2

REPORT INFORMATION
  Report Type: 
  Country: None (occurrence: None)
  Receive Date: 20110525
  Receipt Date: 20110510
  Transmission Date: 20111010
  Serious: Yes (Hospitalization)
  Sender: FDA-Public Use
  Company Number: US-UCBSA-032511

PATIENT
  Sex: Female

DRUGS (13)
  1. ROTIGOTINE [Suspect]
     Indication: PARKINSON'S DISEASE
  2. OMEPRAZOLE [Concomitant]
     Route: 048
  3. AZATHIOPRINE [Concomitant]
     Route: 048
  4. ZOFRAN [Concomitant]
     Route: 048
  5. ACETAMINOPHEN [Concomitant]
  6. RANITIDINE [Concomitant]
     Route: 048
  7. DOCUSATE [Concomitant]
     Dosage: BID
  8. SIMVASTATIN [Concomitant]
  9. HYDRALAZINE HCL [Concomitant]
     Indication: BLOOD PRESSURE SYSTOLIC
     Dosage: EVERY 8 HRS AS NEEDED
     Route: 048
  10. MILK OF MAGNESIA TAB [Concomitant]
  11. ASPIRIN [Concomitant]
  12. BENICAR [Concomitant]
  13. METOPROLOL TARTRATE [Concomitant]
     Route: 048

REACTIONS (1)
  - HIP FRACTURE [None]
